FAERS Safety Report 23358093 (Version 1)
Quarter: 2024Q1

REPORT INFORMATION
  Report Type: Report from Study
  Country: PH (occurrence: PH)
  Receive Date: 20240102
  Receipt Date: 20240102
  Transmission Date: 20240410
  Serious: Yes (Hospitalization)
  Sender: FDA-Public Use
  Company Number: PH-OTSUKA-2023_033751

PATIENT
  Sex: Female

DRUGS (1)
  1. TOLVAPTAN [Suspect]
     Active Substance: TOLVAPTAN
     Indication: Blood sodium decreased
     Dosage: UNK (15 MG HALF TABLET EVERY MONDAY, WEDNESDAY, AND FRIDAY)
     Route: 048
     Dates: start: 2023, end: 202310

REACTIONS (4)
  - Dialysis [Unknown]
  - Wrong technique in product usage process [Unknown]
  - Inappropriate schedule of product administration [Unknown]
  - Underdose [Unknown]

NARRATIVE: CASE EVENT DATE: 20230101
